FAERS Safety Report 5223773-7 (Version None)
Quarter: 2007Q1

REPORT INFORMATION
  Report Type: 
  Country: None (occurrence: None)
  Receive Date: 20070130
  Receipt Date: 20070125
  Transmission Date: 20070707
  Serious: Yes (Death)
  Sender: FDA-Public Use
  Company Number: 200413862JP

PATIENT
  Age: 79 Year
  Sex: Male
  Weight: 59.6 kg

DRUGS (23)
  1. TAXOTERE [Suspect]
     Route: 041
     Dates: start: 20041015, end: 20041015
  2. TAXOTERE [Suspect]
     Route: 041
     Dates: start: 20041111, end: 20041111
  3. NAVELBINE [Suspect]
     Dates: start: 20040713, end: 20040713
  4. NAVELBINE [Suspect]
     Dates: start: 20040720, end: 20040720
  5. NAVELBINE [Suspect]
     Dates: start: 20040803, end: 20040823
  6. KADIAN [Concomitant]
     Indication: CANCER PAIN
     Route: 048
     Dates: start: 20040721, end: 20041212
  7. GASTER D [Concomitant]
     Indication: GASTRITIS
     Route: 048
     Dates: start: 20040730, end: 20041212
  8. AVISHOT [Concomitant]
     Route: 048
     Dates: start: 20040726, end: 20041212
  9. TRYPTANOL                          /00002202/ [Concomitant]
     Indication: PAIN
     Route: 048
     Dates: start: 20041002, end: 20041212
  10. TRYPTANOL                          /00002202/ [Concomitant]
     Indication: INFLAMMATION
     Route: 048
     Dates: start: 20041002, end: 20041212
  11. HYPEN [Concomitant]
     Indication: PAIN
     Route: 048
     Dates: start: 20041031, end: 20041212
  12. HYPEN [Concomitant]
     Indication: INFLAMMATION
     Route: 048
     Dates: start: 20041031, end: 20041212
  13. CODEIN PHOSPHATE [Concomitant]
     Indication: COUGH
     Route: 048
     Dates: start: 20040720, end: 20041212
  14. MAGNESIUM OXIDE [Concomitant]
     Indication: CONSTIPATION
     Route: 048
     Dates: start: 20040717, end: 20041212
  15. BACTRIM [Concomitant]
     Route: 048
     Dates: start: 20041208, end: 20041210
  16. OPSO [Concomitant]
     Route: 048
  17. OPSO [Concomitant]
     Route: 048
  18. ENSURE                             /00472201/ [Concomitant]
     Route: 048
  19. LEVOFLOXACIN [Concomitant]
     Route: 048
  20. DECADRON [Concomitant]
     Indication: PREMEDICATION
     Route: 042
     Dates: start: 20041015, end: 20041015
  21. DECADRON [Concomitant]
     Route: 042
     Dates: start: 20041111, end: 20041111
  22. SEROTONE [Concomitant]
     Indication: PREMEDICATION
     Route: 042
     Dates: start: 20041015, end: 20041015
  23. SEROTONE [Concomitant]
     Route: 041
     Dates: start: 20041111, end: 20041111

REACTIONS (2)
  - PULMONARY FIBROSIS [None]
  - PURPURA [None]
